FAERS Safety Report 6723290-9 (Version None)
Quarter: 2010Q2

REPORT INFORMATION
  Report Type: 
  Country: None (occurrence: None)
  Receive Date: 20100513
  Receipt Date: 20100511
  Transmission Date: 20101027
  Serious: Yes (Other)
  Sender: FDA-Public Use
  Company Number: US-ASTRAZENECA-2007UW06362

PATIENT
  Age: 29 Year
  Sex: Female
  Weight: 124.3 kg

DRUGS (33)
  1. SEROQUEL [Suspect]
     Indication: AFFECTIVE DISORDER
     Dosage: 25 MG TO 200 MG
     Route: 048
     Dates: start: 20011226
  2. SEROQUEL [Suspect]
     Indication: PSYCHOTIC DISORDER
     Dosage: 25 MG TO 200 MG
     Route: 048
     Dates: start: 20011226
  3. SEROQUEL [Suspect]
     Dosage: 25 MG TO 200 MG
     Route: 048
     Dates: start: 20030901, end: 20060101
  4. SEROQUEL [Suspect]
     Dosage: 25 MG TO 200 MG
     Route: 048
     Dates: start: 20030901, end: 20060101
  5. SEROQUEL [Suspect]
     Dosage: 25 MG,100 MG(DISPENSED)
     Route: 048
     Dates: start: 20061014
  6. SEROQUEL [Suspect]
     Dosage: 25 MG,100 MG(DISPENSED)
     Route: 048
     Dates: start: 20061014
  7. RISPERDAL [Concomitant]
     Dosage: 0.5 MG TO 1 MG
     Dates: start: 20030901
  8. ZYPREXA [Concomitant]
     Dates: start: 20060101
  9. ABILIFY [Concomitant]
     Dates: start: 20030101
  10. GEODON [Concomitant]
     Dates: start: 20070101
  11. HALDOL [Concomitant]
     Dates: start: 20070101
  12. TRILAFON [Concomitant]
     Dates: start: 20070101
  13. TRAZODONE [Concomitant]
     Dates: start: 20070725
  14. EFFEXOR [Concomitant]
     Dates: start: 20070725
  15. WELLBUTRIN [Concomitant]
  16. AMBIEN [Concomitant]
  17. SINGULAIR [Concomitant]
     Dates: start: 20060328
  18. SINGULAIR [Concomitant]
     Route: 048
     Dates: start: 20060921
  19. CELEXA [Concomitant]
     Dosage: 10 MG TO 40 MG
     Route: 048
     Dates: start: 20010915
  20. CLONAZEPAM [Concomitant]
     Route: 048
     Dates: start: 20010915
  21. ALLEGRA [Concomitant]
     Route: 048
     Dates: start: 20011226
  22. PREVACID [Concomitant]
     Route: 048
     Dates: start: 20011226
  23. LAMICTAL [Concomitant]
     Route: 048
     Dates: start: 20020110
  24. TOPAMAX [Concomitant]
     Route: 048
     Dates: start: 20021004
  25. DEPAKOTE [Concomitant]
     Route: 048
     Dates: start: 20040402
  26. METFORMIN HYDROCHLORIDE [Concomitant]
     Dates: start: 20070725
  27. ACTOS [Concomitant]
     Dates: start: 20070725
  28. ATENOLOL [Concomitant]
     Dates: start: 20070725
  29. LISINOPRIL [Concomitant]
     Dates: start: 20070725
  30. COLESTID [Concomitant]
     Dates: start: 20070725
  31. MIRTAZAPINE [Concomitant]
     Dates: start: 20070725
  32. MECLIZINE [Concomitant]
     Dates: start: 20070725
  33. ALBUTEROL [Concomitant]
     Dates: start: 20070725

REACTIONS (4)
  - BLOOD CHOLESTEROL INCREASED [None]
  - BLOOD TRIGLYCERIDES INCREASED [None]
  - DIABETIC NEUROPATHY [None]
  - TYPE 2 DIABETES MELLITUS [None]
